FAERS Safety Report 10803338 (Version 2)
Quarter: 2015Q1

REPORT INFORMATION
  Report Type: Spontaneous
  Country: US (occurrence: US)
  Receive Date: 20150217
  Receipt Date: 20150306
  Transmission Date: 20150721
  Serious: Yes (Hospitalization)
  Sender: FDA-Public Use
  Company Number: US-INCYTE CORPORATION-2015IN000475

PATIENT
  Sex: Male
  Weight: 62.59 kg

DRUGS (11)
  1. JAKAFI [Suspect]
     Active Substance: RUXOLITINIB
     Dosage: 10 MG, BID
     Route: 048
     Dates: start: 20140305
  2. CYTOTEC [Concomitant]
     Active Substance: MISOPROSTOL
  3. DIGOXIN. [Concomitant]
     Active Substance: DIGOXIN
  4. HYDROXYUREA. [Concomitant]
     Active Substance: HYDROXYUREA
  5. CREON [Concomitant]
     Active Substance: PANCRELIPASE AMYLASE\PANCRELIPASE LIPASE\PANCRELIPASE PROTEASE
  6. MICARDIS [Concomitant]
     Active Substance: TELMISARTAN
  7. POTASSIUM [Concomitant]
     Active Substance: POTASSIUM
  8. CARAFATE [Concomitant]
     Active Substance: SUCRALFATE
  9. JAKAFI [Suspect]
     Active Substance: RUXOLITINIB
     Indication: MYELOFIBROSIS
     Dosage: 10 MG, BID
     Route: 048
     Dates: start: 2013
  10. NORVASC [Concomitant]
     Active Substance: AMLODIPINE BESYLATE
  11. JAKAFI [Suspect]
     Active Substance: RUXOLITINIB
     Dosage: 20 MG, BID
     Route: 048

REACTIONS (3)
  - Pancreatic carcinoma [Unknown]
  - Decreased appetite [Unknown]
  - Asthenia [Unknown]
